FAERS Safety Report 10415432 (Version 1)
Quarter: 2014Q2

REPORT INFORMATION
  Report Type: Spontaneous
  Country: US (occurrence: None)
  Receive Date: 20140604
  Receipt Date: 20140604
  Transmission Date: 20141212
  Serious: Yes (Hospitalization)
  Sender: FDA-Public Use
  Company Number: 163-POMAL-14013167

PATIENT
  Age: 69 Year
  Sex: Female
  Weight: 69.22 kg

DRUGS (20)
  1. POMALYST (POMALIDOMIDE) (2 MILLIGRAM, CAPSULES) [Suspect]
     Indication: PLASMA CELL MYELOMA
     Dosage: 21 IN 28 D
     Route: 048
     Dates: start: 20130621
  2. POMALYST (POMALIDOMIDE) (2 MILLIGRAM, CAPSULES) [Suspect]
     Indication: AMYLOIDOSIS
     Dosage: 21 IN 28 D
     Route: 048
     Dates: start: 20130621
  3. DECADRON (DEXAMETHASONE) [Concomitant]
  4. XANAX (ALPRAZOLAM) [Concomitant]
  5. ASPIRIN (ACETYLSALICYLIC ACID) (ENTERIC-COATED TABLET) [Concomitant]
  6. ATORVASTATIN CALCIUM [Concomitant]
  7. COLACE (DOCUSATE SODIUM) [Concomitant]
  8. COUMADIN (WARFARIN SODIUM) [Concomitant]
  9. EVOXAC (CEVIMELINE HYDROCHLORIDE) [Concomitant]
  10. FRAGMIN (HEPARIN-FRACTION, SODIUM SALT) [Concomitant]
  11. LANSOPRAZOLE [Concomitant]
  12. LEVOTHYROXINE SODIUM [Concomitant]
  13. METOPROLOL SUCCINATE [Concomitant]
  14. METOPROLOL TARTRATE [Concomitant]
  15. NITROSTAT (GLYCERYL TRINITRATE) [Concomitant]
  16. VITAMIN D (ERGOCALCIFEROL) [Concomitant]
  17. VITAMIN D3 (COLECALCIFEROL) [Concomitant]
  18. SENNA [Concomitant]
  19. MIRALAX (MACROGOL) [Concomitant]
  20. CARFILZOMIB [Concomitant]

REACTIONS (4)
  - Urinary tract infection [None]
  - Oedema [None]
  - Fatigue [None]
  - Dyspnoea [None]
